FAERS Safety Report 12646131 (Version 2)
Quarter: 2016Q3

REPORT INFORMATION
  Report Type: Report from Study
  Country: US (occurrence: US)
  Receive Date: 20160811
  Receipt Date: 20160819
  Transmission Date: 20161109
  Serious: Yes (Hospitalization, Other)
  Sender: FDA-Public Use
  Company Number: US-ABBVIE-16K-163-1695776-00

PATIENT
  Age: 19 Year
  Sex: Male
  Weight: 81.72 kg

DRUGS (2)
  1. HUMIRA [Suspect]
     Active Substance: ADALIMUMAB
     Route: 058
     Dates: start: 201603
  2. HUMIRA [Suspect]
     Active Substance: ADALIMUMAB
     Indication: CROHN^S DISEASE
     Route: 058
     Dates: start: 201308, end: 201508

REACTIONS (10)
  - Wound [Recovered/Resolved]
  - Incision site infection [Recovered/Resolved]
  - Incorrect dose administered [Unknown]
  - Post procedural discharge [Recovered/Resolved]
  - Volvulus of small bowel [Recovered/Resolved]
  - Constipation [Recovered/Resolved]
  - Device issue [Unknown]
  - Vomiting [Recovered/Resolved]
  - Gastrointestinal infection [Unknown]
  - Wound complication [Recovered/Resolved]

NARRATIVE: CASE EVENT DATE: 201512
